FAERS Safety Report 21283425 (Version 2)
Quarter: 2022Q3

REPORT INFORMATION
  Report Type: Spontaneous
  Country: JP (occurrence: JP)
  Receive Date: 20220901
  Receipt Date: 20220908
  Transmission Date: 20221027
  Serious: No
  Sender: FDA-Public Use
  Company Number: JP-Merck Healthcare KGaA-9343213

PATIENT
  Sex: Female

DRUGS (3)
  1. ERBITUX [Suspect]
     Active Substance: CETUXIMAB
     Indication: Product used for unknown indication
     Dosage: UNK UNK, UNKNOWN
     Route: 041
  2. BRAFTOVI [Suspect]
     Active Substance: ENCORAFENIB
     Indication: Product used for unknown indication
     Dosage: UNK UNK, UNKNOWN
     Route: 065
  3. MEKTOVI [Suspect]
     Active Substance: BINIMETINIB
     Indication: Product used for unknown indication
     Dosage: UNK UNK, UNKNOWN
     Route: 065

REACTIONS (2)
  - Protein urine [Unknown]
  - Blood creatinine increased [Unknown]
